FAERS Safety Report 9364481 (Version 1)
Quarter: 2013Q2

REPORT INFORMATION
  Report Type: Spontaneous
  Country: US (occurrence: US)
  Receive Date: 20130624
  Receipt Date: 20130624
  Transmission Date: 20140414
  Serious: Yes (Death, Hospitalization, Other)
  Sender: FDA-Public Use
  Company Number: US-MUTUAL PHARMACEUTICAL COMPANY, INC.-BCTM20130057

PATIENT
  Age: 64 Year
  Sex: Female
  Weight: 61.4 kg

DRUGS (7)
  1. BACTRIM [Suspect]
     Route: 048
     Dates: start: 20130408, end: 2013
  2. TOFACITINIB 5 MG [Concomitant]
     Route: 048
     Dates: start: 2013
  3. LEFLUNAMIDE [Concomitant]
     Route: 048
     Dates: start: 2013
  4. DESIPRAMINE 10 MG [Concomitant]
     Route: 048
  5. ERGOCALCIFEROL 50,000 IU CAPSULES [Concomitant]
     Route: 048
  6. HYDROCHLOROTHIAZIDE-LISINOPRIL 12.5 MG/ 20 MG [Concomitant]
     Route: 048
  7. SERTRALINE 100 MG [Concomitant]
     Route: 048

REACTIONS (28)
  - Staphylococcal sepsis [None]
  - Metabolic disorder [None]
  - Septic shock [None]
  - Acute respiratory failure [Unknown]
  - Cerebellar infarction [None]
  - Cerebral thrombosis [None]
  - Mental status changes [None]
  - Purulent discharge [Recovered/Resolved]
  - Pain [Unknown]
  - Hyponatraemia [Recovered/Resolved]
  - Asthenia [Unknown]
  - Delirium [Unknown]
  - Electroencephalogram abnormal [None]
  - Drug dependence [Unknown]
  - Local swelling [Unknown]
  - Haematemesis [Unknown]
  - Diarrhoea [Unknown]
  - Haemoglobin decreased [Recovered/Resolved]
  - Gastrointestinal haemorrhage [Unknown]
  - Convulsion [Unknown]
  - Hypokalaemia [Unknown]
  - Blood phosphorus increased [Unknown]
  - Blood uric acid increased [Unknown]
  - Blood alkaline phosphatase increased [Unknown]
  - Protein total decreased [Unknown]
  - Blood calcium decreased [Unknown]
  - Blood bilirubin increased [Unknown]
  - Platelet count decreased [Unknown]
